FAERS Safety Report 11114642 (Version 8)
Quarter: 2019Q3

REPORT INFORMATION
  Report Type: Report from Study
  Country: GB (occurrence: GB)
  Receive Date: 20150515
  Receipt Date: 20190830
  Transmission Date: 20191004
  Serious: Yes (Other)
  Sender: FDA-Public Use
  Company Number: PHHY2015GB055267

PATIENT
  Age: 44 Year
  Sex: Female

DRUGS (1)
  1. GILENYA [Suspect]
     Active Substance: FINGOLIMOD HYDROCHLORIDE
     Indication: MULTIPLE SCLEROSIS
     Dosage: 0.5 MG, QD
     Route: 048
     Dates: start: 20150331

REACTIONS (8)
  - Bradycardia [Recovered/Resolved]
  - Neutrophil count decreased [Recovered/Resolved]
  - Arthralgia [Unknown]
  - Ventricular tachycardia [Recovered/Resolved]
  - Blood pressure decreased [Recovered/Resolved]
  - Wrist fracture [Recovered/Resolved]
  - White blood cell count decreased [Unknown]
  - Lymphocyte count decreased [Unknown]

NARRATIVE: CASE EVENT DATE: 20150331
